FAERS Safety Report 8078770-3 (Version None)
Quarter: 2012Q1

REPORT INFORMATION
  Report Type: 
  Country: None (occurrence: None)
  Receive Date: 20120124
  Receipt Date: 20120120
  Transmission Date: 20120608
  Serious: Yes (Death, Hospitalization, Other)
  Sender: FDA-Public Use
  Company Number: ADR-2011-11813

PATIENT
  Age: 44 Year
  Sex: Female

DRUGS (2)
  1. LIORESAL [Suspect]
     Indication: MULTIPLE SCLEROSIS
     Dosage: SEE B5
  2. LIORESAL [Suspect]
     Indication: MUSCLE SPASTICITY
     Dosage: SEE B5

REACTIONS (11)
  - ANXIETY [None]
  - URINARY TRACT INFECTION [None]
  - DISORIENTATION [None]
  - SPASTIC PARALYSIS [None]
  - MENTAL STATUS CHANGES [None]
  - CONFUSIONAL STATE [None]
  - SUICIDAL IDEATION [None]
  - INTENTIONAL SELF-INJURY [None]
  - COGNITIVE DISORDER [None]
  - MENTAL DISORDER [None]
  - DEVICE BREAKAGE [None]
